FAERS Safety Report 8078511-X (Version None)
Quarter: 2012Q1

REPORT INFORMATION
  Report Type: 
  Country: None (occurrence: None)
  Receive Date: 20120127
  Receipt Date: 20110103
  Transmission Date: 20120608
  Serious: No
  Sender: FDA-Public Use
  Company Number: US-ABBOTT-11P-163-0694672-00

PATIENT
  Sex: Female
  Weight: 86.26 kg

DRUGS (5)
  1. METOPROLOL TARTRATE [Concomitant]
     Indication: HYPERTENSION
     Route: 048
  2. HUMIRA [Suspect]
     Indication: PSORIATIC ARTHROPATHY
     Route: 058
     Dates: start: 20070101
  3. LEVOTHYROXINE SODIUM [Concomitant]
     Indication: HYPOTHYROIDISM
     Route: 048
  4. XANAX [Concomitant]
     Indication: INSOMNIA
     Route: 048
  5. SERTRALINE HYDROCHLORIDE [Concomitant]
     Indication: DEPRESSION
     Dosage: 1.5 IN ONE DAY
     Route: 048

REACTIONS (5)
  - INFLUENZA [None]
  - COUGH [None]
  - RHINORRHOEA [None]
  - ASTHENIA [None]
  - NASAL CONGESTION [None]
